FAERS Safety Report 4717639-6 (Version None)
Quarter: 2005Q3

REPORT INFORMATION
  Report Type: 
  Country: None (occurrence: None)
  Receive Date: 20050713
  Receipt Date: 20050519
  Transmission Date: 20060218
  Serious: Yes (Other)
  Sender: FDA-Public Use
  Company Number: 405847

PATIENT
  Sex: 0

DRUGS (6)
  1. FUZEON [Suspect]
     Indication: DRUG USE FOR UNKNOWN INDICATION
     Dates: start: 20040615
  2. VIREAD [Concomitant]
  3. REYATAZ [Concomitant]
  4. LEXIVA [Concomitant]
  5. EPIVIR [Concomitant]
  6. ZERIT [Concomitant]

REACTIONS (1)
  - VIRAL LOAD INCREASED [None]
